FAERS Safety Report 9772303 (Version 3)
Quarter: 2014Q1

REPORT INFORMATION
  Report Type: Report from Study
  Country: JP (occurrence: JP)
  Receive Date: 20131219
  Receipt Date: 20140110
  Transmission Date: 20141002
  Serious: Yes (Life-Threatening, Other)
  Sender: FDA-Public Use
  Company Number: JP-TAKEDA-2013TJP003275

PATIENT
  Age: 65 Year
  Sex: Male
  Weight: 80 kg

DRUGS (5)
  1. ALOGLIPTIN [Suspect]
     Indication: TYPE 2 DIABETES MELLITUS
     Dosage: 25 MG, QD
     Route: 048
     Dates: start: 20120809, end: 20130507
  2. METGLUCO [Concomitant]
     Indication: TYPE 2 DIABETES MELLITUS
     Dosage: 500 MG, 1 DAYS
     Route: 048
     Dates: start: 20120711
  3. LIPITOR [Concomitant]
     Dosage: 20 MG, 1 DAYS
     Route: 048
  4. DIOVAN [Concomitant]
     Dosage: 80 MG, 1 DAYS
     Route: 048
  5. CARDENALIN [Concomitant]
     Dosage: 1 MG, 1 DAYS
     Route: 048

REACTIONS (6)
  - Fall [Recovered/Resolved]
  - Rib fracture [Recovering/Resolving]
  - Upper limb fracture [Recovering/Resolving]
  - Cough [Recovered/Resolved]
  - Sputum retention [Recovered/Resolved]
  - Blood pressure increased [Recovered/Resolved]
